FAERS Safety Report 6273549-7 (Version None)
Quarter: 2009Q3

REPORT INFORMATION
  Report Type: 
  Country: None (occurrence: None)
  Receive Date: 20090715
  Receipt Date: 20090708
  Transmission Date: 20100115
  Serious: Yes (Congenital Anomaly, Other)
  Sender: FDA-Public Use
  Company Number: 321307

PATIENT

DRUGS (2)
  1. PHENYTOIN [Suspect]
     Dosage: UNKNOWN, UNKNOWN, TRANSPLACENTAL
     Route: 064
  2. FOLIC ACID [Concomitant]

REACTIONS (2)
  - AUTISM [None]
  - MATERNAL DRUGS AFFECTING FOETUS [None]
